FAERS Safety Report 4644352-6 (Version None)
Quarter: 2005Q2

REPORT INFORMATION
  Report Type: 
  Country: None (occurrence: None)
  Receive Date: 20050331
  Receipt Date: 20041227
  Transmission Date: 20051028
  Serious: No
  Sender: FDA-Public Use
  Company Number: 04P-163-0284705-00

PATIENT
  Age: 66 Year
  Sex: Female
  Weight: 74.8435 kg

DRUGS (9)
  1. HUMIRA [Suspect]
     Indication: RHEUMATOID ARTHRITIS
     Dosage: 40 MG, 1 IN 2 WK, SUBCUTANEOUS
     Route: 058
     Dates: start: 20041101, end: 20041223
  2. AMITRIPTYLINE HCL TAB [Concomitant]
  3. METOPROLOL SUCCINATE [Concomitant]
  4. OMEPRAZOLE [Concomitant]
  5. MELOXICAM [Concomitant]
  6. PREDNISONE TAB [Concomitant]
  7. HYDROEYE [Concomitant]
  8. ATORVASTATIN CALCIUM [Concomitant]
  9. MULTI-VITAMINS [Concomitant]

REACTIONS (4)
  - DYSPEPSIA [None]
  - ORAL MUCOSAL BLISTERING [None]
  - POLLAKIURIA [None]
  - UNEVALUABLE EVENT [None]
